FAERS Safety Report 23716070 (Version 4)
Quarter: 2024Q2

REPORT INFORMATION
  Report Type: Spontaneous
  Country: FR (occurrence: FR)
  Receive Date: 20240408
  Receipt Date: 20240621
  Transmission Date: 20240715
  Serious: Yes (Death, Life-Threatening, Hospitalization, Other)
  Sender: FDA-Public Use
  Company Number: FR-ELERTE-202400010

PATIENT
  Age: 34 Year
  Sex: Male
  Weight: 79 kg

DRUGS (36)
  1. PAROXETINE [Suspect]
     Active Substance: PAROXETINE
     Indication: Back pain
     Dosage: PAROXETINE HYDROCHLORIDE 20 MG/UNK THERAPY START DATE: //2016 THERAPY END DATE: //2016
     Route: 048
     Dates: start: 20160829, end: 2016
  2. FENTANYL [Interacting]
     Active Substance: FENTANYL\FENTANYL CITRATE
     Indication: Back pain
     Dosage: THERAPY START DATE: //2016?THERAPY END DATE: //2016/DUROGESIC. ?THE DOCTOR PRESCRIBED HIM OVER A ...
     Route: 062
     Dates: start: 20160726, end: 2016
  3. TEMAZEPAM [Interacting]
     Active Substance: TEMAZEPAM
     Indication: Product used for unknown indication
     Route: 065
  4. PRAZEPAM [Interacting]
     Active Substance: PRAZEPAM
     Indication: Product used for unknown indication
     Route: 048
     Dates: start: 20160902, end: 2016
  5. SKENAN [Interacting]
     Active Substance: MORPHINE SULFATE
     Indication: Back pain
     Dosage: SKENAN L.P.
     Route: 065
     Dates: start: 20160902, end: 20160905
  6. SKENAN [Interacting]
     Active Substance: MORPHINE SULFATE
     Indication: Back pain
     Dosage: SKENAN L.P., 1 DOSAGE FORM, 1/DAY ?THERAPY START AND END DATE //2016
     Route: 065
     Dates: start: 201607, end: 2016
  7. ARTANE [Suspect]
     Active Substance: TRIHEXYPHENIDYL HYDROCHLORIDE
     Indication: Product used for unknown indication
     Dosage: UNK
     Route: 048
     Dates: start: 20160810, end: 20160908
  8. OXAZEPAM [Interacting]
     Active Substance: OXAZEPAM
     Indication: Product used for unknown indication
     Route: 065
  9. VALIUM [Interacting]
     Active Substance: DIAZEPAM
     Indication: Psychiatric symptom
     Dosage: UNK
     Route: 048
     Dates: start: 20160902, end: 20160905
  10. MIANSERIN [Interacting]
     Active Substance: MIANSERIN
     Indication: Depression
     Dosage: THERAPY START DATE: //2016?THERAPY END DATE: //2016. ?THE DOCTOR PRESCRIBED HIM OVER A PERIOD BET...
     Route: 065
     Dates: start: 2016, end: 2016
  11. THIOCOLCHICOSIDE [Interacting]
     Active Substance: THIOCOLCHICOSIDE
     Indication: Product used for unknown indication
     Dosage: UNK
     Route: 048
     Dates: start: 2016, end: 2016
  12. OXYCONTIN [Interacting]
     Active Substance: OXYCODONE HYDROCHLORIDE
     Indication: Product used for unknown indication
     Route: 065
  13. QUETIAPINE FUMARATE [Interacting]
     Active Substance: QUETIAPINE FUMARATE
     Indication: Product used for unknown indication
     Dosage: XEROQUEL LP
     Route: 065
     Dates: start: 20160830, end: 2016
  14. NIFUROXAZIDE [Suspect]
     Active Substance: NIFUROXAZIDE
     Indication: Product used for unknown indication
     Dosage: UNK
     Route: 048
     Dates: start: 2016, end: 2016
  15. AMISULPRIDE [Interacting]
     Active Substance: AMISULPRIDE
     Indication: Schizophrenia
     Route: 065
  16. PAROXETINE MESYLATE [Suspect]
     Active Substance: PAROXETINE MESYLATE
     Indication: Back pain
     Dosage: PAROXETINE 20 MG/UNK, THERAPY START DATE: //2016, THERAPY END DATE: //2016
     Route: 065
     Dates: start: 20160817, end: 20160918
  17. ARTANE [Interacting]
     Active Substance: TRIHEXYPHENIDYL HYDROCHLORIDE
     Indication: Depression
     Dosage: UNK
     Route: 048
  18. ETIFOXINE [Interacting]
     Active Substance: ETIFOXINE
     Indication: Product used for unknown indication
     Route: 065
     Dates: start: 201608, end: 20160908
  19. CLOTIAZEPAM [Interacting]
     Active Substance: CLOTIAZEPAM
     Indication: Product used for unknown indication
     Dosage: 3 TABLETS PER DAY FOR A MONTH
     Route: 048
     Dates: start: 20160830, end: 2016
  20. AMISULPRIDE [Interacting]
     Active Substance: AMISULPRIDE
     Indication: Depression
     Dosage: UNK
     Route: 048
  21. ACETAMINOPHEN [Interacting]
     Active Substance: ACETAMINOPHEN
     Indication: Product used for unknown indication
     Route: 065
  22. CLOBAZAM [Interacting]
     Active Substance: CLOBAZAM
     Indication: Product used for unknown indication
     Dosage: SCORED TABLET
     Route: 048
     Dates: start: 20160824, end: 20160908
  23. ALPRAZOLAM [Interacting]
     Active Substance: ALPRAZOLAM
     Indication: Psychiatric symptom
     Dosage: UNK
     Route: 048
  24. CODEINE PHOSPHATE\IBUPROFEN [Interacting]
     Active Substance: CODEINE PHOSPHATE\IBUPROFEN
     Indication: Back pain
     Dosage: 1 DOSAGE FORM, THERAPY START DATE: //2016, THERAPY END DATE: //2016
     Route: 048
     Dates: start: 20160902, end: 2016
  25. KETAMINE [Interacting]
     Active Substance: KETAMINE
     Indication: Back pain
     Dosage: UNK?THERAPY START DATE: //2016?THERAPY END DATE: //2016
     Route: 065
     Dates: start: 2016, end: 2016
  26. COCAINE [Interacting]
     Active Substance: COCAINE
     Indication: Product used for unknown indication
     Route: 065
  27. NORDAZEPAM [Interacting]
     Active Substance: NORDAZEPAM
     Indication: Product used for unknown indication
     Route: 065
  28. OXAZEPAM [Concomitant]
     Active Substance: OXAZEPAM
     Indication: Depression
     Dosage: UNK
     Route: 048
  29. NAFRONYL [Interacting]
     Active Substance: NAFRONYL
     Indication: Product used for unknown indication
     Route: 065
  30. CLONAZEPAM [Interacting]
     Active Substance: CLONAZEPAM
     Indication: Product used for unknown indication
     Dosage: ARROW
     Route: 065
  31. ZOPICLONE [Interacting]
     Active Substance: ZOPICLONE
     Indication: Depression
     Dosage: UNK
     Route: 048
  32. TRAMADOL HYDROCHLORIDE [Interacting]
     Active Substance: TRAMADOL HYDROCHLORIDE
     Indication: Back pain
     Dosage: UNK THERAPY START DATE: //2016 THERAPY END DATE: //2016
     Route: 048
     Dates: start: 20160903, end: 2016
  33. MEPHENESIN [Interacting]
     Active Substance: MEPHENESIN
     Indication: Product used for unknown indication
     Route: 065
  34. QUETIAPINE [Interacting]
     Active Substance: QUETIAPINE
     Indication: Product used for unknown indication
     Dosage: 300 MILLIGRAM, 1/DAY, QUETIAPINE [QUETIAPINE FUMARATE]
     Route: 065
  35. ACETAMINOPHEN\CODEINE PHOSPHATE [Interacting]
     Active Substance: ACETAMINOPHEN\CODEINE PHOSPHATE
     Indication: Product used for unknown indication
     Dosage: PARACETAMOL CODEINE
     Route: 048
     Dates: start: 2016, end: 2016
  36. IBUPROFEN [Interacting]
     Active Substance: IBUPROFEN
     Indication: Back pain
     Dosage: UNK THERAPY START DATE //2016 THERAPY END DATE: //2016
     Route: 048
     Dates: start: 2016, end: 2016

REACTIONS (34)
  - Pancreas infection [Fatal]
  - Accidental poisoning [Fatal]
  - Cardiomyopathy [Fatal]
  - Hepatic cytolysis [Fatal]
  - Myocarditis [Fatal]
  - Encephalopathy [Fatal]
  - Myocardial infarction [Fatal]
  - Respiratory depression [Fatal]
  - Coma [Fatal]
  - Overdose [Fatal]
  - Hepatitis acute [Fatal]
  - Somnolence [Fatal]
  - Labelled drug-drug interaction issue [Not Recovered/Not Resolved]
  - Cardiac disorder [Fatal]
  - Coronary artery stenosis [Fatal]
  - Cardio-respiratory arrest [Fatal]
  - Jaundice [Fatal]
  - Monocytosis [Unknown]
  - Confusional state [Fatal]
  - Cholecystitis infective [Fatal]
  - Hyperglycaemia [Fatal]
  - White blood cell count increased [Fatal]
  - Coronary artery stenosis [Fatal]
  - Drug screen false positive [Fatal]
  - Hepatic enzyme increased [Fatal]
  - Inflammation [Unknown]
  - Synovitis [Unknown]
  - Toxicity to various agents [Fatal]
  - Pulmonary oedema [Fatal]
  - Respiratory depression [Fatal]
  - Hepatic cytolysis [Fatal]
  - Hypersomnia [Unknown]
  - Leukocytosis [Unknown]
  - Cardiomyopathy [Fatal]

NARRATIVE: CASE EVENT DATE: 20160101
